FAERS Safety Report 15323021 (Version 1)
Quarter: 2018Q3

REPORT INFORMATION
  Report Type: Report from Study
  Country: US (occurrence: US)
  Receive Date: 20180827
  Receipt Date: 20180827
  Transmission Date: 20181010
  Serious: Yes (Death)
  Sender: FDA-Public Use
  Company Number: US-PFIZER INC-2018340247

PATIENT

DRUGS (4)
  1. ITACITINIB [Suspect]
     Active Substance: ITACITINIB
     Indication: NEOPLASM
     Dosage: 300 MG, 1X/DAY
     Route: 048
  2. ABRAXANE [Suspect]
     Active Substance: PACLITAXEL
     Indication: NEOPLASM
     Dosage: 125 MG/M2, CYCLIC (DAYS 1, 8, AND 15 OF EACH 28?DAY CYCLE)
     Route: 042
  3. FILGRASTIM [Concomitant]
     Active Substance: FILGRASTIM
     Indication: COLONY STIMULATING FACTOR PROPHYLAXIS
     Dosage: UNK
  4. GEMCITABINE HYDROCHLORIDE. [Suspect]
     Active Substance: GEMCITABINE HYDROCHLORIDE
     Indication: NEOPLASM
     Dosage: 1000 MG/M2, CYCLIC (DAYS 1, 8, AND 15 OF EACH 28?DAY CYCLE)
     Route: 042

REACTIONS (1)
  - Pneumonia [Fatal]
